FAERS Safety Report 9677478 (Version 1)
Quarter: 2013Q4

REPORT INFORMATION
  Report Type: Spontaneous
  Country: GB (occurrence: GB)
  Receive Date: 20131108
  Receipt Date: 20131108
  Transmission Date: 20140711
  Serious: Yes (Other)
  Sender: FDA-Public Use
  Company Number: PHFR2013GB006193

PATIENT
  Sex: Female

DRUGS (2)
  1. LETROZOLE [Suspect]
     Dosage: UNK UKN, UNK
  2. HERCEPTIN [Suspect]
     Dosage: UNK UKN, UNK
     Route: 065

REACTIONS (6)
  - Heart rate irregular [Unknown]
  - Hypertension [Unknown]
  - Breast tenderness [Unknown]
  - Sleep apnoea syndrome [Unknown]
  - Abdominal pain upper [Unknown]
  - Depressed mood [Unknown]
